FAERS Safety Report 15304142 (Version 1)
Quarter: 2018Q3

REPORT INFORMATION
  Report Type: Report from Study
  Country: US (occurrence: US)
  Receive Date: 20180821
  Receipt Date: 20180821
  Transmission Date: 20181010
  Serious: No
  Sender: FDA-Public Use
  Company Number: US-AMGEN INC.-USASL2018106388

PATIENT
  Age: 50 Year
  Sex: Female

DRUGS (1)
  1. AIMOVIG [Suspect]
     Active Substance: ERENUMAB-AOOE
     Indication: MIGRAINE
     Dosage: 140 MG, UNK
     Route: 065
     Dates: start: 20180729, end: 20180729

REACTIONS (7)
  - Dyspnoea [Unknown]
  - Feeling drunk [Unknown]
  - Feeling abnormal [Unknown]
  - Throat tightness [Unknown]
  - Migraine [Not Recovered/Not Resolved]
  - Pain in extremity [Unknown]
  - Heart rate increased [Unknown]

NARRATIVE: CASE EVENT DATE: 20180729
